FAERS Safety Report 10149153 (Version 1)
Quarter: 2014Q2

REPORT INFORMATION
  Report Type: Spontaneous
  Country: JP (occurrence: JP)
  Receive Date: 20140502
  Receipt Date: 20140502
  Transmission Date: 20141212
  Serious: Yes (Hospitalization, Other)
  Sender: FDA-Public Use
  Company Number: JP-ACCORD-023398

PATIENT
  Age: 59 Year
  Sex: Female

DRUGS (3)
  1. FLUOROURACIL [Suspect]
     Indication: RECTAL CANCER
  2. IRINOTECAN [Suspect]
     Indication: RECTAL CANCER
  3. BEVACIZUMAB [Suspect]
     Indication: RECTAL CANCER

REACTIONS (4)
  - Haemophilus infection [Recovered/Resolved]
  - Renal impairment [Recovered/Resolved]
  - Septic shock [Recovered/Resolved]
  - Necrotising fasciitis [Recovered/Resolved]
